FAERS Safety Report 26052947 (Version 1)
Quarter: 2025Q4

REPORT INFORMATION
  Report Type: Spontaneous
  Country: US (occurrence: US)
  Receive Date: 20251117
  Receipt Date: 20251117
  Transmission Date: 20260118
  Serious: No
  Sender: MAYNE
  Company Number: US-MAYNE PHARMA-2025MYN000447

PATIENT
  Sex: Female

DRUGS (1)
  1. BIJUVA [Suspect]
     Active Substance: ESTRADIOL\PROGESTERONE
     Indication: Menopausal symptoms
     Dosage: UNK
     Route: 065

REACTIONS (3)
  - Choking sensation [Unknown]
  - Product use complaint [Unknown]
  - Product packaging difficult to open [Unknown]
